FAERS Safety Report 8581528-X (Version None)
Quarter: 2012Q3

REPORT INFORMATION
  Report Type: 
  Country: None (occurrence: None)
  Receive Date: 20120809
  Receipt Date: 20120802
  Transmission Date: 20120928
  Serious: Yes (Other)
  Sender: FDA-Public Use
  Company Number: NL-AMGEN-NLDSP2012048505

PATIENT
  Age: 82 Year
  Sex: Female

DRUGS (5)
  1. VITAMIN B-12 [Concomitant]
  2. ARANESP [Suspect]
     Dosage: 500 MUG, QWK
     Route: 058
     Dates: start: 20120101, end: 20120802
  3. ARANESP [Suspect]
     Indication: ANAEMIA
     Dosage: 150 MUG, UNK
     Route: 058
     Dates: start: 20100715
  4. ARANESP [Suspect]
     Dosage: 300 MUG, UNK
     Route: 058
     Dates: start: 20110405
  5. CRESTOR [Concomitant]

REACTIONS (2)
  - DRUG EFFECT DECREASED [None]
  - ANAEMIA [None]
